FAERS Safety Report 25113918 (Version 2)
Quarter: 2025Q1

REPORT INFORMATION
  Report Type: Spontaneous
  Country: US (occurrence: US)
  Receive Date: 20250324
  Receipt Date: 20250328
  Transmission Date: 20250409
  Serious: No
  Sender: Haleon PLC
  Company Number: US-HALEON-2234506

PATIENT
  Sex: Female

DRUGS (1)
  1. THERAFLU SEVERE COLD RELIEF NIGHTTIME (ACETAMINOPHEN\DIPHENHYDRAMINE H [Suspect]
     Active Substance: ACETAMINOPHEN\DIPHENHYDRAMINE HYDROCHLORIDE
     Indication: Influenza
     Dates: start: 20250320

REACTIONS (2)
  - Somnolence [Recovered/Resolved]
  - Accidental exposure to product [Unknown]

NARRATIVE: CASE EVENT DATE: 20250320
